FAERS Safety Report 6556379-8 (Version None)
Quarter: 2010Q1

REPORT INFORMATION
  Report Type: 
  Country: None (occurrence: None)
  Receive Date: 20100128
  Receipt Date: 20100120
  Transmission Date: 20100710
  Serious: Yes (Life-Threatening, Hospitalization)
  Sender: FDA-Public Use
  Company Number: GXKR2010GB01001

PATIENT
  Age: 10 Year
  Sex: Female
  Weight: 34.9 kg

DRUGS (11)
  1. ITRACONAZOLE [Suspect]
     Indication: BRONCHOPULMONARY ASPERGILLOSIS ALLERGIC
     Dosage: 150 MG, BID
     Route: 048
     Dates: start: 20040714, end: 20050120
  2. FLUTICASONE PROPIONATE [Interacting]
     Dosage: 125 UG, BID
     Dates: start: 20040310
  3. FLUTICASONE PROPIONATE [Interacting]
     Dosage: 250 UG, BID
     Dates: start: 20040929, end: 20041208
  4. FLUTICASONE PROPIONATE W/SALMETEROL XINAFOATE [Interacting]
     Indication: CYSTIC FIBROSIS
     Dosage: TWICE A DAY
     Dates: start: 20041208, end: 20050112
  5. ABDEC [Concomitant]
     Indication: CYSTIC FIBROSIS
     Dosage: 1 ML, QD
     Route: 048
  6. CEFACLOR [Concomitant]
     Indication: CYSTIC FIBROSIS
     Dosage: 750 MG, BID
     Route: 048
  7. CREON [Concomitant]
     Indication: CYSTIC FIBROSIS
     Route: 048
  8. PREDNISOLONE [Concomitant]
     Indication: CYSTIC FIBROSIS
     Dosage: UNK
     Route: 065
     Dates: start: 20030101
  9. TOBI [Concomitant]
     Indication: CYSTIC FIBROSIS
     Dosage: 300 MG, BID
     Route: 065
  10. URSODEOXYCHOLIC ACID [Concomitant]
     Indication: CYSTIC FIBROSIS
     Dosage: 375 MG, BID
     Route: 048
  11. VITAMIN E [Concomitant]
     Indication: CYSTIC FIBROSIS
     Dosage: 100 MG, QD
     Route: 048

REACTIONS (4)
  - BLOOD CORTISOL DECREASED [None]
  - DRUG INTERACTION [None]
  - GROWTH RETARDATION [None]
  - PITUITARY-DEPENDENT CUSHING'S SYNDROME [None]
